FAERS Safety Report 18062915 (Version 3)
Quarter: 2022Q2

REPORT INFORMATION
  Report Type: Report from Study
  Country: UA (occurrence: UA)
  Receive Date: 20200723
  Receipt Date: 20220406
  Transmission Date: 20220721
  Serious: Yes (Death, Other)
  Sender: FDA-Public Use
  Company Number: UA-TAKEDA-2020TUS024123

PATIENT
  Sex: Female

DRUGS (1)
  1. BRENTUXIMAB VEDOTIN [Suspect]
     Active Substance: BRENTUXIMAB VEDOTIN
     Indication: Hodgkin^s disease refractory
     Dosage: 95 MILLIGRAM, Q3WEEKS
     Route: 042
     Dates: start: 20200227

REACTIONS (4)
  - Death [Fatal]
  - Hodgkin^s disease refractory [Unknown]
  - Polyneuropathy [Unknown]
  - Blood creatinine increased [Unknown]
